FAERS Safety Report 19186882 (Version 4)
Quarter: 2022Q2

REPORT INFORMATION
  Report Type: Report from Study
  Country: CN (occurrence: None)
  Receive Date: 20210428
  Receipt Date: 20220616
  Transmission Date: 20220720
  Serious: Yes (Hospitalization)
  Sender: FDA-Public Use
  Company Number: CN-ROCHE-2812966

PATIENT
  Age: 68 Year
  Sex: Female
  Weight: 45 kg

DRUGS (10)
  1. ATEZOLIZUMAB [Suspect]
     Active Substance: ATEZOLIZUMAB
     Indication: Non-small cell lung cancer
     Dosage: ON 25/MAR/2021, LAST DOSE OF ATEZOLIZUMAB (1200 MG) WAS ADMINISTERED PRIOR ADVERSE EVENT.
     Route: 041
     Dates: start: 20201204
  2. CARBOPLATIN [Suspect]
     Active Substance: CARBOPLATIN
     Indication: Non-small cell lung cancer
     Dosage: ON 25/FEB/2021, MOST RECENT DOSE OF CARBOPLATIN (360 MG) PRIOR TO SAE AND AE WAS GIVEN
     Route: 042
     Dates: start: 20201204
  3. BEVACIZUMAB [Suspect]
     Active Substance: BEVACIZUMAB
     Indication: Non-small cell lung cancer
     Dosage: ON 25/MAR/2021, MOST RECENT DOSE OF BEVACIZUMAB 675 MG PRIOR TO SERIOUS ADVERSE EVENT WAS GIVEN
     Route: 042
     Dates: start: 20201204
  4. PEMETREXED [Suspect]
     Active Substance: PEMETREXED
     Indication: Non-small cell lung cancer
     Dosage: ON 26/MAR/2021, MOST RECENT DOSE OF PEMETREXED 695 MG PRIOR TO SAE AND AE WAS GIVEN
     Route: 042
     Dates: start: 20201204
  5. TROPISETRON CITRATE [Concomitant]
     Dosage: GIVEN FOR PROPHYLAXIS
     Dates: start: 20210325, end: 20210327
  6. DEXAMETHASONE [Concomitant]
     Active Substance: DEXAMETHASONE
     Dosage: GIVEN FOR PROPHYLAXIS
     Route: 048
     Dates: start: 20210325, end: 20210327
  7. RABEPRAZOLE SODIUM [Concomitant]
     Active Substance: RABEPRAZOLE SODIUM
     Dosage: GIVEN FOR PROPHYLAXIS
     Dates: start: 20210323, end: 20210327
  8. FOSAPREPITANT DIMEGLUMINE [Concomitant]
     Active Substance: FOSAPREPITANT DIMEGLUMINE
     Dosage: GIVEN FOR PROPHYLAXIS
     Dates: start: 20210326, end: 20210326
  9. PALONOSETRON HYDROCHLORIDE [Concomitant]
     Active Substance: PALONOSETRON HYDROCHLORIDE
     Dosage: GIVEN FOR PROPHYLAXIS
     Dates: start: 20210326, end: 20210326
  10. JIN YOU LI [Concomitant]
     Indication: White blood cell count increased
     Dates: start: 20210323, end: 20210323

REACTIONS (2)
  - Liver injury [Not Recovered/Not Resolved]
  - Drug-induced liver injury [Not Recovered/Not Resolved]

NARRATIVE: CASE EVENT DATE: 20210414
